FAERS Safety Report 9239560 (Version 3)
Quarter: 2013Q3

REPORT INFORMATION
  Report Type: Spontaneous
  Country: FR (occurrence: FR)
  Receive Date: 20130418
  Receipt Date: 20130925
  Transmission Date: 20140515
  Serious: Yes (Hospitalization)
  Sender: FDA-Public Use
  Company Number: FR-PFIZER INC-2013116882

PATIENT
  Age: 47 Year
  Sex: Male

DRUGS (11)
  1. MEDROL [Suspect]
     Indication: SCIATICA
     Dosage: 80 MG, 1X/DAY, IN THE MORNING
     Route: 048
     Dates: start: 20121105
  2. MEDROL [Suspect]
     Dosage: 40 MG, 1X/DAY, IN THE MORNING
     Route: 048
  3. MEDROL [Suspect]
     Dosage: 60 MG, 1X/DAY, IN THE MORNING
     Route: 048
     Dates: end: 20121222
  4. TEGRETOL [Suspect]
     Indication: SCIATICA
     Dosage: UNK
     Route: 048
     Dates: start: 20121105, end: 20121222
  5. APRANAX [Suspect]
     Indication: SCIATICA
     Dosage: 1100 MG, 1X/DAY
     Route: 048
     Dates: start: 20121130, end: 20121222
  6. VISIPAQUE [Suspect]
     Indication: ARTERIAL DISORDER
     Dosage: 1 DF, SINGLE
     Route: 048
     Dates: start: 20121207
  7. HEPARIN CALCIUM [Suspect]
     Indication: PROPHYLAXIS
     Dosage: UNK
     Route: 042
     Dates: start: 20121207, end: 20121220
  8. KENACORT [Concomitant]
     Indication: POLYMORPHIC LIGHT ERUPTION
     Dosage: ONCE YEARLY
     Dates: start: 2003
  9. PLAQUENIL [Concomitant]
     Indication: POLYMORPHIC LIGHT ERUPTION
     Dosage: ONCE YEARLY
     Dates: start: 2003
  10. KARDEGIC [Concomitant]
  11. PLAVIX [Concomitant]

REACTIONS (4)
  - Drug reaction with eosinophilia and systemic symptoms [Recovered/Resolved]
  - Dermatitis exfoliative [Recovered/Resolved]
  - Eosinophilia [Recovered/Resolved]
  - Pruritus [Recovered/Resolved]
